FAERS Safety Report 12922746 (Version 2)
Quarter: 2016Q4

REPORT INFORMATION
  Report Type: Spontaneous
  Country: US (occurrence: US)
  Receive Date: 20161108
  Receipt Date: 20161109
  Transmission Date: 20170207
  Serious: Yes (Hospitalization, Other)
  Sender: FDA-Public Use
  Company Number: US-ELI_LILLY_AND_COMPANY-US201611000045

PATIENT
  Age: 62 Year
  Sex: Female

DRUGS (7)
  1. SOMA [Concomitant]
     Active Substance: CARISOPRODOL
  2. PERCOCET                           /00446701/ [Concomitant]
     Active Substance: ACETAMINOPHEN\OXYCODONE HYDROCHLORIDE\OXYCODONE TEREPHTHALATE
  3. FORTEO [Suspect]
     Active Substance: TERIPARATIDE
     Indication: PRODUCT USED FOR UNKNOWN INDICATION
     Dosage: UNK, QD
     Route: 065
     Dates: start: 201512
  4. DILAUDID [Concomitant]
     Active Substance: HYDROMORPHONE HYDROCHLORIDE
  5. HYDROCODONE [Concomitant]
     Active Substance: HYDROCODONE
  6. LISINOPRIL HCTZ [Concomitant]
     Active Substance: HYDROCHLOROTHIAZIDE\LISINOPRIL
  7. VITAMIN A                          /00056001/ [Concomitant]
     Active Substance: RETINOL

REACTIONS (9)
  - Urinary tract infection [Unknown]
  - Visual impairment [Unknown]
  - Gait disturbance [Unknown]
  - Malaise [Unknown]
  - Renal failure [Unknown]
  - Escherichia sepsis [Unknown]
  - Infection [Unknown]
  - Memory impairment [Unknown]
  - Incorrect product storage [Unknown]

NARRATIVE: CASE EVENT DATE: 20160817
